FAERS Safety Report 9736114 (Version 1)
Quarter: 2013Q4

REPORT INFORMATION
  Report Type: Spontaneous
  Country: US (occurrence: US)
  Receive Date: 20131206
  Receipt Date: 20131206
  Transmission Date: 20140711
  Serious: Yes (Other)
  Sender: FDA-Public Use
  Company Number: CHPA2013US018048

PATIENT
  Age: 65 Year
  Sex: Female

DRUGS (3)
  1. ACETYLSALICYLIC ACID [Suspect]
     Dosage: UNK
     Route: 048
     Dates: start: 1953
  2. ASCRIPTIN BUFFERED [Suspect]
     Indication: CARDIAC DISORDER
     Dosage: 1 DF, QD
     Route: 048
     Dates: start: 2001
  3. ASCRIPTIN BUFFERED [Suspect]
     Indication: OFF LABEL USE

REACTIONS (1)
  - Type 1 diabetes mellitus [Not Recovered/Not Resolved]
